FAERS Safety Report 21559233 (Version 2)
Quarter: 2022Q4

REPORT INFORMATION
  Report Type: Report from Study
  Country: CA (occurrence: CA)
  Receive Date: 20221107
  Receipt Date: 20221110
  Transmission Date: 20230113
  Serious: Yes (Other)
  Sender: FDA-Public Use
  Company Number: CA-JNJFOC-20220664466

PATIENT
  Age: 23 Year
  Sex: Female
  Weight: 31.326 kg

DRUGS (1)
  1. REMICADE [Suspect]
     Active Substance: INFLIXIMAB
     Indication: Colitis ulcerative
     Dosage: ON 02-NOV-2022, PATIENT RECEIVED 33RD INFLIXIMAB INFUSION OF 400 MG.
     Route: 042
     Dates: start: 20190126

REACTIONS (6)
  - Systemic lupus erythematosus [Unknown]
  - Staphylococcal infection [Unknown]
  - Abdominal distension [Unknown]
  - Urticaria [Unknown]
  - Psoriasis [Unknown]
  - Off label use [Unknown]

NARRATIVE: CASE EVENT DATE: 20190126
